FAERS Safety Report 7303593-X (Version None)
Quarter: 2011Q1

REPORT INFORMATION
  Report Type: 
  Country: None (occurrence: None)
  Receive Date: 20110221
  Receipt Date: 20110207
  Transmission Date: 20110831
  Serious: Yes (Other)
  Sender: FDA-Public Use
  Company Number: PHHY2010DE68443

PATIENT
  Sex: Female
  Weight: 68 kg

DRUGS (4)
  1. PAMIDRONATE DISODIUM [Concomitant]
     Dosage: 60 MG, TIW
     Dates: start: 20060307
  2. BELOC ZOK [Concomitant]
     Dosage: UNK
     Dates: start: 20080101
  3. CGS 20267 [Suspect]
     Indication: BREAST CANCER
     Dosage: 2.5 MG DAILY
     Route: 048
     Dates: start: 20080501
  4. BIPHOSPHONAT [Concomitant]

REACTIONS (2)
  - NEOPLASM MALIGNANT [None]
  - ANGIOMYOLIPOMA [None]
